FAERS Safety Report 6265139-7 (Version None)
Quarter: 2009Q3

REPORT INFORMATION
  Report Type: 
  Country: None (occurrence: None)
  Receive Date: 20090713
  Receipt Date: 20080916
  Transmission Date: 20100115
  Serious: No
  Sender: FDA-Public Use
  Company Number: US-TYCO HEALTHCARE/MALLINCKRODT-T200801519

PATIENT

DRUGS (4)
  1. MORPHINE [Suspect]
     Indication: ROAD TRAFFIC ACCIDENT
  2. OXYCONTIN [Suspect]
     Indication: DRUG DIVERSION
  3. VICODIN [Suspect]
     Indication: ROAD TRAFFIC ACCIDENT
  4. PERCOCET [Suspect]
     Indication: ROAD TRAFFIC ACCIDENT

REACTIONS (1)
  - WITHDRAWAL SYNDROME [None]
